FAERS Safety Report 8374792-3 (Version None)
Quarter: 2012Q2

REPORT INFORMATION
  Report Type: 
  Country: None (occurrence: None)
  Receive Date: 20120521
  Receipt Date: 20120507
  Transmission Date: 20120825
  Serious: No
  Sender: FDA-Public Use
  Company Number: US-ASTRAZENECA-2012SE05418

PATIENT
  Age: 53 Year
  Sex: Female
  Weight: 77.1 kg

DRUGS (8)
  1. SEROQUEL XR [Suspect]
     Route: 048
  2. AMITRIPTYLINE HCL [Concomitant]
  3. SEROQUEL XR [Suspect]
     Indication: BIPOLAR DISORDER
     Route: 048
  4. SEROQUEL XR [Suspect]
     Dosage: 300 MG AT NIGHT INSTEAD OF TWO
     Route: 048
  5. CYMBALTA [Concomitant]
  6. GABAPENTIN [Concomitant]
  7. LISINOPRIL [Concomitant]
     Indication: BLOOD PRESSURE ABNORMAL
  8. SEROQUEL XR [Suspect]
     Route: 048

REACTIONS (9)
  - DISTURBANCE IN ATTENTION [None]
  - MALAISE [None]
  - DEPRESSION [None]
  - ACTIVITIES OF DAILY LIVING IMPAIRED [None]
  - ADVERSE EVENT [None]
  - INTENTIONAL DRUG MISUSE [None]
  - MEMORY IMPAIRMENT [None]
  - NIGHTMARE [None]
  - INSOMNIA [None]
